FAERS Safety Report 12975941 (Version 1)
Quarter: 2016Q4

REPORT INFORMATION
  Report Type: Spontaneous
  Country: CA (occurrence: CA)
  Receive Date: 20161125
  Receipt Date: 20161125
  Transmission Date: 20170207
  Serious: Yes (Other)
  Sender: FDA-Public Use
  Company Number: CA-ASTRAZENECA-2016SF22940

PATIENT
  Age: 71 Year
  Sex: Male

DRUGS (6)
  1. LUMIGAN [Concomitant]
     Active Substance: BIMATOPROST
  2. FORXIGA [Suspect]
     Active Substance: DAPAGLIFLOZIN
     Indication: GLYCOSYLATED HAEMOGLOBIN
     Route: 048
  3. CADUET [Concomitant]
     Active Substance: AMLODIPINE BESYLATE\ATORVASTATIN CALCIUM
  4. JANUMET [Concomitant]
     Active Substance: METFORMIN HYDROCHLORIDE\SITAGLIPTIN PHOSPHATE
  5. DIAMICRON [Concomitant]
     Active Substance: GLICLAZIDE
  6. DIOVAN [Concomitant]
     Active Substance: VALSARTAN

REACTIONS (5)
  - Muscular weakness [Recovered/Resolved]
  - Myalgia [Recovered/Resolved]
  - Dizziness [Recovered/Resolved]
  - Dysuria [Recovered/Resolved]
  - Back pain [Recovered/Resolved]
